FAERS Safety Report 14102011 (Version 1)
Quarter: 2017Q4

REPORT INFORMATION
  Report Type: Spontaneous
  Country: GB (occurrence: GB)
  Receive Date: 20171018
  Receipt Date: 20171018
  Transmission Date: 20180321
  Serious: Yes (Other)
  Sender: FDA-Public Use
  Company Number: GB-CONCORDIA PHARMACEUTICALS INC.-GSH201710-005779

PATIENT
  Age: 62 Year
  Sex: Female

DRUGS (13)
  1. ABSTRAL [Concomitant]
     Active Substance: FENTANYL CITRATE
     Route: 060
  2. LYRICA [Concomitant]
     Active Substance: PREGABALIN
  3. PARACETAMOL [Concomitant]
     Active Substance: ACETAMINOPHEN
  4. PREDNISOLONE. [Suspect]
     Active Substance: PREDNISOLONE
     Indication: POLYMYALGIA RHEUMATICA
     Dosage: 80 MG REDUCING DOWN TO 11 MG AT PRESENT.
     Route: 048
     Dates: start: 2009
  5. DIHYDROCODEINE [Concomitant]
     Active Substance: DIHYDROCODEINE
  6. NORTRIPTYLIN [Concomitant]
     Active Substance: NORTRIPTYLINE
  7. LANSOPRAZOLE. [Concomitant]
     Active Substance: LANSOPRAZOLE
  8. SLOZEM [Concomitant]
     Active Substance: DILTIAZEM
  9. LISINOPRIL. [Concomitant]
     Active Substance: LISINOPRIL
  10. WARFARIN [Concomitant]
     Active Substance: WARFARIN
  11. PREDNISOLONE. [Suspect]
     Active Substance: PREDNISOLONE
     Indication: POLYMYALGIA RHEUMATICA
     Dosage: 80 MG REDUCING DOWN TO 11 MG AT PRESENT.
     Route: 048
  12. ADCAL-D3 [Concomitant]
     Active Substance: CALCIUM CARBONATE\CHOLECALCIFEROL
  13. ATORVASTATIN [Concomitant]
     Active Substance: ATORVASTATIN

REACTIONS (1)
  - Deafness bilateral [Not Recovered/Not Resolved]
